FAERS Safety Report 6432804-8 (Version None)
Quarter: 2009Q4

REPORT INFORMATION
  Report Type: 
  Country: None (occurrence: None)
  Receive Date: 20091109
  Receipt Date: 20091029
  Transmission Date: 20100525
  Serious: Yes (Other)
  Sender: FDA-Public Use
  Company Number: A0815452A

PATIENT
  Age: 44 Year
  Sex: Female

DRUGS (6)
  1. TYKERB [Suspect]
     Dosage: 1250MG PER DAY
     Dates: start: 20080101, end: 20090301
  2. UNKNOWN [Suspect]
     Dates: start: 20080101
  3. CISPLATIN [Suspect]
     Dates: start: 20080101
  4. CAPECITABINE [Suspect]
     Dates: start: 20080101
  5. UNKNOWN [Suspect]
     Dates: start: 20080101
  6. FULVESTRANT [Suspect]
     Dates: start: 20080101

REACTIONS (1)
  - DISEASE PROGRESSION [None]
